FAERS Safety Report 9035524 (Version 1)
Quarter: 2013Q1

REPORT INFORMATION
  Report Type: Report from Study
  Country: US (occurrence: US)
  Receive Date: 20130129
  Receipt Date: 20130129
  Transmission Date: 20140127
  Serious: No
  Sender: FDA-Public Use
  Company Number: US-ABBOTT-12P-163-0907191-00

PATIENT
  Age: 54 Year
  Sex: Female

DRUGS (4)
  1. HUMIRA 40 MG/0.8 ML PEN [Suspect]
     Indication: CROHN^S DISEASE
     Dates: start: 20111121
  2. CLIMARA [Concomitant]
     Indication: PRODUCT USED FOR UNKNOWN INDICATION
     Dosage: .05 MG PATCH APPLY WEEKLY
  3. PROMETRIUM [Concomitant]
     Indication: ILL-DEFINED DISORDER
     Dosage: AT NIGHT
  4. ASACOL [Concomitant]
     Indication: CROHN^S DISEASE
     Dosage: 400 MG 3 PILLS BID

REACTIONS (3)
  - Induration [Not Recovered/Not Resolved]
  - Cough [Not Recovered/Not Resolved]
  - Bloody discharge [Not Recovered/Not Resolved]
